FAERS Safety Report 9310395 (Version 1)
Quarter: 2013Q2

REPORT INFORMATION
  Report Type: Spontaneous
  Country: US (occurrence: US)
  Receive Date: 20130527
  Receipt Date: 20130527
  Transmission Date: 20140414
  Serious: No
  Sender: FDA-Public Use
  Company Number: US-PFIZER INC-2013159469

PATIENT
  Age: 35 Year
  Sex: Female
  Weight: 86.17 kg

DRUGS (3)
  1. CHANTIX [Suspect]
     Indication: SMOKING CESSATION THERAPY
     Dosage: 0.5 MG, 1X/DAY
     Dates: start: 201209, end: 2012
  2. CHANTIX [Suspect]
     Dosage: UNK
     Dates: start: 2012, end: 201211
  3. YAZ [Concomitant]
     Indication: CONTRACEPTION
     Dosage: 1 DF, 1X/DAY

REACTIONS (6)
  - Emotional disorder [Not Recovered/Not Resolved]
  - Agitation [Not Recovered/Not Resolved]
  - Weight increased [Not Recovered/Not Resolved]
  - Anger [Not Recovered/Not Resolved]
  - Feeling abnormal [Not Recovered/Not Resolved]
  - Crying [Not Recovered/Not Resolved]
